FAERS Safety Report 8488493-4 (Version None)
Quarter: 2012Q3

REPORT INFORMATION
  Report Type: 
  Country: None (occurrence: None)
  Receive Date: 20120705
  Receipt Date: 20120702
  Transmission Date: 20120928
  Serious: Yes (Other)
  Sender: FDA-Public Use
  Company Number: US-PFIZER INC-2012159731

PATIENT
  Sex: Female
  Weight: 80.27 kg

DRUGS (4)
  1. POTASSIUM [Concomitant]
     Dosage: UNK
  2. AMIODARONE HCL [Suspect]
     Indication: ATRIAL FIBRILLATION
     Dosage: 200 MG, DAILY
     Dates: start: 20060101
  3. FUROSEMIDE [Concomitant]
     Dosage: UNK
  4. WARFARIN [Concomitant]
     Dosage: UNK

REACTIONS (1)
  - CARDIAC DISORDER [None]
